FAERS Safety Report 5143105-2 (Version None)
Quarter: 2006Q4

REPORT INFORMATION
  Report Type: 
  Country: None (occurrence: None)
  Receive Date: 20061103
  Receipt Date: 20061024
  Transmission Date: 20070319
  Serious: Yes (Hospitalization)
  Sender: FDA-Public Use
  Company Number: PHBS2006NZ16613

PATIENT
  Age: 26 Year
  Sex: Male

DRUGS (4)
  1. CLOZARIL [Suspect]
     Dosage: 550 MG/D
     Route: 048
     Dates: start: 20020212, end: 20061001
  2. CLOZARIL [Suspect]
     Dosage: 550 MG, ONCE/SINGLE
     Route: 048
     Dates: start: 20061019, end: 20061019
  3. CLOZARIL [Suspect]
     Dosage: 12.5 MG TITRATED UP
     Route: 048
     Dates: start: 20061020
  4. CLONAZEPAM [Concomitant]
     Dosage: 4 MG/D

REACTIONS (5)
  - AGITATION [None]
  - DEPRESSED LEVEL OF CONSCIOUSNESS [None]
  - EMOTIONAL DISTRESS [None]
  - GRAND MAL CONVULSION [None]
  - TREATMENT NONCOMPLIANCE [None]
